FAERS Safety Report 6597031-2 (Version None)
Quarter: 2010Q1

REPORT INFORMATION
  Report Type: 
  Country: None (occurrence: None)
  Receive Date: 20100223
  Receipt Date: 20100217
  Transmission Date: 20100710
  Serious: Yes (Other)
  Sender: FDA-Public Use
  Company Number: A0845539A

PATIENT
  Age: 52 Year
  Sex: Female
  Weight: 97.7 kg

DRUGS (1)
  1. AVANDIA [Suspect]
     Dosage: 4MG PER DAY
     Route: 048
     Dates: start: 20071015, end: 20090301

REACTIONS (4)
  - CARDIAC FAILURE CONGESTIVE [None]
  - CARDIOMYOPATHY [None]
  - DYSPNOEA [None]
  - IMPAIRED WORK ABILITY [None]
